FAERS Safety Report 20649182 (Version 3)
Quarter: 2022Q2

REPORT INFORMATION
  Report Type: Spontaneous
  Country: IT (occurrence: IT)
  Receive Date: 20220329
  Receipt Date: 20220404
  Transmission Date: 20220720
  Serious: Yes (Death, Hospitalization)
  Sender: FDA-Public Use
  Company Number: IT-PFIZER INC-202200471131

PATIENT
  Age: 88 Year
  Sex: Female

DRUGS (1)
  1. PAXLOVID [Suspect]
     Active Substance: NIRMATRELVIR\RITONAVIR
     Indication: COVID-19 treatment
     Dosage: UNK
     Dates: start: 20220301

REACTIONS (2)
  - Respiratory failure [Fatal]
  - Off label use [Unknown]

NARRATIVE: CASE EVENT DATE: 20220301
